FAERS Safety Report 15240241 (Version 1)
Quarter: 2018Q3

REPORT INFORMATION
  Report Type: Spontaneous
  Country: FR (occurrence: FR)
  Receive Date: 20180804
  Receipt Date: 20180804
  Transmission Date: 20181010
  Serious: Yes (Life-Threatening)
  Sender: FDA-Public Use
  Company Number: FR-ACCORD-070440

PATIENT
  Age: 80 Year
  Sex: Male
  Weight: 93 kg

DRUGS (11)
  1. CEFAZOLINE PANPHARMA [Suspect]
     Active Substance: CEFAZOLIN SODIUM
     Indication: ANTIBIOTIC PROPHYLAXIS
     Dosage: 2 G
     Route: 042
     Dates: start: 20171114, end: 20171114
  2. KETOPROFENE MEDAC [Suspect]
     Active Substance: KETOPROFEN
     Indication: ANALGESIC THERAPY
     Route: 042
     Dates: start: 20171114, end: 20171114
  3. CISATRACURIUM ACCORD [Suspect]
     Active Substance: CISATRACURIUM BESYLATE
     Indication: ANAESTHESIA
     Dosage: 10 MG
     Route: 042
     Dates: start: 20171114, end: 20171114
  4. ROPIVACAINE KABI [Suspect]
     Active Substance: ROPIVACAINE
     Indication: ANAESTHESIA
     Dosage: 20 MG
     Dates: start: 20171114, end: 20171114
  5. EXACYL [Suspect]
     Active Substance: TRANEXAMIC ACID
     Indication: PRODUCT USED FOR UNKNOWN INDICATION
     Dosage: 1 G
     Route: 042
     Dates: start: 20171114, end: 20171114
  6. PROPOFOL LIPURO [Suspect]
     Active Substance: PROPOFOL
     Indication: ANAESTHESIA
     Dosage: 20 MG
     Route: 042
     Dates: start: 20171114, end: 20171114
  7. KETAMINE PANPHARMA [Suspect]
     Active Substance: KETAMINE
     Indication: ANALGESIC THERAPY
     Dosage: 20 MG
     Route: 042
     Dates: start: 20171114, end: 20171114
  8. PARACETAMOL KABI [Suspect]
     Active Substance: ACETAMINOPHEN
     Indication: ANALGESIC THERAPY
     Dosage: 1 G
     Route: 042
     Dates: start: 20171114, end: 20171114
  9. DEXAMETHASONE MYLAN [Suspect]
     Active Substance: DEXAMETHASONE
     Indication: ANALGESIC THERAPY
     Dosage: 8 MG
     Route: 042
     Dates: start: 20171114, end: 20171114
  10. NEFOPAM MYLAN [Suspect]
     Active Substance: NEFOPAM
     Indication: ANALGESIC THERAPY
     Dosage: 20 MG
     Route: 042
     Dates: start: 20171114, end: 20171114
  11. SUFENTANIL MYLAN [Suspect]
     Active Substance: SUFENTANIL
     Indication: ANAESTHESIA
     Dosage: 20 UG
     Route: 042
     Dates: start: 20171114, end: 20171114

REACTIONS (1)
  - Tonic clonic movements [Unknown]

NARRATIVE: CASE EVENT DATE: 20171114
